FAERS Safety Report 5765044-6 (Version None)
Quarter: 2008Q2

REPORT INFORMATION
  Report Type: 
  Country: None (occurrence: None)
  Receive Date: 20080611
  Receipt Date: 20080602
  Transmission Date: 20081010
  Serious: Yes (Other)
  Sender: FDA-Public Use
  Company Number: DE-ASTRAZENECA-2008PK01212

PATIENT
  Sex: Female

DRUGS (2)
  1. ARIMIDEX [Suspect]
     Indication: BREAST CANCER FEMALE
     Route: 048
     Dates: start: 20080301, end: 20080501
  2. HERCEPTIN [Suspect]
     Indication: BREAST CANCER FEMALE
     Dates: start: 20080301, end: 20080501

REACTIONS (1)
  - SKIN REACTION [None]
